FAERS Safety Report 8807970 (Version 1)
Quarter: 2012Q4

REPORT INFORMATION
  Report Type: 
  Country: US (occurrence: US)
  Receive Date: 20120925
  Receipt Date: 20120925
  Transmission Date: 20130627
  Serious: Yes (Death, Other)
  Sender: FDA-Public Use
  Company Number: US-ROCHE-1101893

PATIENT
  Sex: Male

DRUGS (3)
  1. AVASTIN [Suspect]
     Indication: BLADDER CANCER
     Route: 065
     Dates: end: 201002
  2. AVASTIN [Suspect]
     Indication: ANAEMIA
  3. PEMETREXED [Concomitant]
     Route: 065
     Dates: end: 201002

REACTIONS (2)
  - Disease progression [Fatal]
  - Metastases to prostate [Unknown]
